FAERS Safety Report 7550889-2 (Version None)
Quarter: 2011Q2

REPORT INFORMATION
  Report Type: 
  Country: None (occurrence: None)
  Receive Date: 20110616
  Receipt Date: 20110616
  Transmission Date: 20111010
  Serious: Yes (Other)
  Sender: FDA-Public Use
  Company Number: PL-ROXANE LABORATORIES, INC.-2011-DE-03376GD

PATIENT
  Age: 60 Year
  Sex: Male

DRUGS (11)
  1. PREDNISONE [Suspect]
     Indication: IMMUNOSUPPRESSANT DRUG THERAPY
     Dosage: 5 MG
  2. DILTIAZEM [Concomitant]
     Dosage: 90 MG
  3. TACROLIMUS [Suspect]
     Indication: IMMUNOSUPPRESSANT DRUG THERAPY
     Dosage: 0.5 MG
  4. FUROSEMIDE [Concomitant]
     Dosage: 40 MG
  5. ALLOPURINOL [Concomitant]
     Dosage: 100 MG
  6. BISOPROLOL FUMARATE [Concomitant]
     Dosage: 5 MG
  7. DOXAZOSIN MESYLATE [Concomitant]
     Dosage: 4 MG
  8. MYCOPHENOLATE MEFETIL [Suspect]
     Indication: IMMUNOSUPPRESSANT DRUG THERAPY
     Dosage: 250 MG
  9. SHORT-ACTING HUMAN INSULIN [Concomitant]
     Indication: DIABETES MELLITUS
     Dosage: 10 U AT MIDDAY
  10. RANITIDINE [Concomitant]
     Dosage: 150 MG
  11. PREMIXED INSULIN [Concomitant]
     Indication: DIABETES MELLITUS
     Dosage: 40% FAST-ACTING AND 60% PROLONGED-ACTING, 16 U IN THE MORNING AND 16 U IN THE EVENING

REACTIONS (5)
  - GASTRODUODENAL ULCER [None]
  - DIABETES MELLITUS [None]
  - BOWEN'S DISEASE [None]
  - BASAL CELL CARCINOMA [None]
  - HYPERTENSION [None]
